FAERS Safety Report 10376386 (Version 1)
Quarter: 2014Q3

REPORT INFORMATION
  Report Type: Spontaneous
  Country: US (occurrence: US)
  Receive Date: 20140811
  Receipt Date: 20140811
  Transmission Date: 20150326
  Serious: No
  Sender: FDA-Public Use
  Company Number: US-PFIZER INC-2014222137

PATIENT
  Age: 85 Year
  Sex: Male
  Weight: 84.81 kg

DRUGS (6)
  1. LYRICA [Suspect]
     Active Substance: PREGABALIN
     Dosage: 3 DF, 2X/DAY
  2. LYRICA [Suspect]
     Active Substance: PREGABALIN
     Dosage: 2 CAPSULES IN MORNING AND 1 IN NIGHT
  3. LYRICA [Suspect]
     Active Substance: PREGABALIN
     Dosage: 3 CAPSULES IN MORNING AND 2 IN NIGHT
  4. METFORMIN [Concomitant]
     Active Substance: METFORMIN HYDROCHLORIDE
     Indication: DIABETES MELLITUS
     Dosage: UNK, 2X/DAY
  5. LYRICA [Suspect]
     Active Substance: PREGABALIN
     Indication: NEUROPATHY PERIPHERAL
     Dosage: 1 DF, DAILY
     Dates: start: 201407
  6. LYRICA [Suspect]
     Active Substance: PREGABALIN
     Dosage: 1DF, 2X/DAY

REACTIONS (1)
  - Pain [Unknown]

NARRATIVE: CASE EVENT DATE: 201407
